FAERS Safety Report 17692419 (Version 1)
Quarter: 2020Q2

REPORT INFORMATION
  Report Type: Spontaneous
  Country: GB (occurrence: GB)
  Receive Date: 20200422
  Receipt Date: 20200422
  Transmission Date: 20200714
  Serious: Yes (Hospitalization)
  Sender: FDA-Public Use
  Company Number: GB-TEVA-2020-GB-1225650

PATIENT
  Age: 90 Year
  Sex: Male

DRUGS (17)
  1. PARACETAMOL [Concomitant]
     Active Substance: ACETAMINOPHEN
     Dosage: 1-2 ,4 TIMES A DAY
     Route: 048
  2. BIMATOPROST. [Concomitant]
     Active Substance: BIMATOPROST
     Dosage: 1GTT, RIGHT EYE. 100MICROGRAMS/ML
     Route: 061
  3. TAMSULOSIN [Concomitant]
     Active Substance: TAMSULOSIN
     Dosage: 400MCG
     Route: 048
  4. QUININE SULFATE. [Concomitant]
     Active Substance: QUININE SULFATE
     Dosage: 200 MILLIGRAM DAILY; EVENING
     Route: 048
  5. LANSOPRAZOLE. [Suspect]
     Active Substance: LANSOPRAZOLE
     Dosage: 30MG
     Route: 048
     Dates: end: 20200326
  6. DIGOXIN. [Suspect]
     Active Substance: DIGOXIN
     Dosage: 250MG
     Route: 048
     Dates: end: 20200326
  7. ATORVASTATIN [Concomitant]
     Active Substance: ATORVASTATIN
     Dosage: 80MG
     Route: 048
  8. HYLO-TEAR [Concomitant]
     Dosage: 8GTT, BOTH EYES. AS NECESSARY.
     Route: 061
  9. FUROSEMIDE. [Concomitant]
     Active Substance: FUROSEMIDE
     Dosage: 40MG
     Route: 048
  10. GLYCERYL TRINITRATE [Concomitant]
     Active Substance: NITROGLYCERIN
     Dosage: 1-2 SPRAYS. 400MICROGRAMS/DOSE
     Route: 060
  11. ACETYLSALICYLIC ACID [Concomitant]
     Active Substance: ASPIRIN
     Dosage: 75MG
     Route: 048
  12. BISOPROLOL [Concomitant]
     Active Substance: BISOPROLOL
     Dosage: 2.5MG
     Route: 048
  13. PIOGLITAZONE. [Concomitant]
     Active Substance: PIOGLITAZONE
     Dosage: 45MG
     Route: 048
     Dates: end: 20200326
  14. CLOPIDOGREL [Concomitant]
     Active Substance: CLOPIDOGREL BISULFATE
     Dosage: 75MG
     Route: 048
  15. FINASTERIDE. [Concomitant]
     Active Substance: FINASTERIDE
     Dosage: 5MG
     Route: 048
  16. DORZOLAMIDE [Concomitant]
     Active Substance: DORZOLAMIDE
     Dosage: 2GTT, RIGHT EYE.  20MG/ML.
     Route: 061
  17. ISOSORBIDE MONONITRATE. [Concomitant]
     Active Substance: ISOSORBIDE MONONITRATE
     Dosage: 30MG
     Route: 048

REACTIONS (4)
  - Blood magnesium decreased [Unknown]
  - Atrioventricular block first degree [Unknown]
  - Malaise [Unknown]
  - Cardioactive drug level increased [Recovering/Resolving]

NARRATIVE: CASE EVENT DATE: 20200326
